FAERS Safety Report 19441904 (Version 1)
Quarter: 2021Q2

REPORT INFORMATION
  Report Type: Spontaneous
  Country: NG (occurrence: NG)
  Receive Date: 20210621
  Receipt Date: 20210621
  Transmission Date: 20210717
  Serious: Yes (Other)
  Sender: FDA-Public Use
  Company Number: NG-LUPIN PHARMACEUTICALS INC.-2021-09688

PATIENT
  Age: 22 Year
  Sex: Female

DRUGS (10)
  1. ASPIRIN. [Suspect]
     Active Substance: ASPIRIN
     Indication: COVID-19
     Dosage: 75 MILLIGRAM, QD
     Route: 048
     Dates: start: 2020
  2. CHLOROQUINE. [Suspect]
     Active Substance: CHLOROQUINE
     Indication: COVID-19
     Dosage: 250 MILLIGRAM, BID
     Route: 065
     Dates: start: 2020
  3. IVERMECTIN. [Suspect]
     Active Substance: IVERMECTIN
     Indication: COVID-19
     Dosage: 12 MILLIGRAM, QD
     Route: 048
     Dates: start: 2020
  4. AZITHROMYCIN ANHYDROUS. [Suspect]
     Active Substance: AZITHROMYCIN ANHYDROUS
     Indication: COVID-19
     Dosage: 500 MILLIGRAM, QD
     Route: 048
     Dates: start: 2020
  5. MULTIVITAMIN [Suspect]
     Active Substance: VITAMINS
     Indication: COVID-19
     Dosage: UNK
     Route: 065
     Dates: start: 2020
  6. VITAMIN C [Suspect]
     Active Substance: ASCORBIC ACID
     Indication: COVID-19
     Dosage: 500 MILLIGRAM, QD
     Route: 065
     Dates: start: 2020
  7. ZINC. [Suspect]
     Active Substance: ZINC
     Indication: COVID-19
     Dosage: 50 MILLIGRAM, BID
     Route: 065
     Dates: start: 2020
  8. DEXAMETHASONE. [Suspect]
     Active Substance: DEXAMETHASONE
     Indication: COVID-19
     Dosage: 2 MILLIGRAM, BID
     Route: 065
     Dates: start: 2020
  9. NAPROXEN. [Concomitant]
     Active Substance: NAPROXEN
     Indication: POLYARTHRITIS
     Dosage: 250 MILLIGRAM, PRN
     Route: 048
     Dates: start: 2020
  10. CIPROFLOXACIN. [Concomitant]
     Active Substance: CIPROFLOXACIN
     Indication: DIARRHOEA
     Dosage: 500 MILLIGRAM, BID
     Route: 048
     Dates: start: 2020

REACTIONS (1)
  - Off label use [Unknown]

NARRATIVE: CASE EVENT DATE: 2020
